FAERS Safety Report 4437591-0 (Version None)
Quarter: 2004Q3

REPORT INFORMATION
  Report Type: 
  Country: None (occurrence: None)
  Receive Date: 20040830
  Receipt Date: 20040830
  Transmission Date: 20050211
  Serious: Yes (Death)
  Sender: FDA-Public Use
  Company Number: None

PATIENT
  Age: 24 Year
  Sex: Male
  Weight: 90.7194 kg

DRUGS (2)
  1. OXYCONTIN [Suspect]
  2. BEER [Suspect]

REACTIONS (3)
  - ALCOHOL USE [None]
  - DRUG ABUSER [None]
  - RESPIRATORY FAILURE [None]
